FAERS Safety Report 14707759 (Version 1)
Quarter: 2018Q2

REPORT INFORMATION
  Report Type: Spontaneous
  Country: FR (occurrence: FR)
  Receive Date: 20180403
  Receipt Date: 20180403
  Transmission Date: 20180711
  Serious: Yes (Other)
  Sender: FDA-Public Use
  Company Number: FR-CIPLA LTD.-2018FR13556

PATIENT

DRUGS (4)
  1. PARACETAMOL [Suspect]
     Active Substance: ACETAMINOPHEN
     Indication: SKELETAL DYSPLASIA
     Dosage: 4 G, PER DAY
     Route: 065
  2. ZOLEDRONIC ACID [Suspect]
     Active Substance: ZOLEDRONIC ACID
     Indication: SKELETAL DYSPLASIA
     Dosage: 5 MG, IN TOTAL
  3. PREDNISONE. [Suspect]
     Active Substance: PREDNISONE
     Indication: SKELETAL DYSPLASIA
     Dosage: 30 MG, PER DAY
     Route: 065
  4. TRAMADOL. [Suspect]
     Active Substance: TRAMADOL
     Indication: SKELETAL DYSPLASIA
     Dosage: 300 MG, PER DAY
     Route: 065

REACTIONS (2)
  - Treatment failure [Unknown]
  - Pain [Unknown]
